FAERS Safety Report 8203290-2 (Version None)
Quarter: 2012Q1

REPORT INFORMATION
  Report Type: 
  Country: None (occurrence: None)
  Receive Date: 20120312
  Receipt Date: 20120306
  Transmission Date: 20120608
  Serious: Yes (Other)
  Sender: FDA-Public Use
  Company Number: US-ROCHE-793869

PATIENT
  Sex: Female
  Weight: 61.29 kg

DRUGS (1)
  1. ACCUTANE [Suspect]
     Indication: ACNE
     Dosage: INGESTED IN THE MID 1990S
     Route: 065

REACTIONS (10)
  - INTESTINAL OBSTRUCTION [None]
  - DEPRESSION [None]
  - RENAL DISORDER [None]
  - INFLAMMATORY BOWEL DISEASE [None]
  - INSOMNIA [None]
  - CHRONIC FATIGUE SYNDROME [None]
  - IRRITABLE BOWEL SYNDROME [None]
  - CHRONIC OBSTRUCTIVE PULMONARY DISEASE [None]
  - VISUAL IMPAIRMENT [None]
  - PANIC ATTACK [None]
